FAERS Safety Report 4892046-4 (Version None)
Quarter: 2006Q1

REPORT INFORMATION
  Report Type: 
  Country: None (occurrence: None)
  Receive Date: 20060125
  Receipt Date: 20051109
  Transmission Date: 20060701
  Serious: Yes (Hospitalization)
  Sender: FDA-Public Use
  Company Number: DL2005442

PATIENT
  Age: 33 Year
  Sex: Female

DRUGS (7)
  1. MIFEPRISTONE TABLETS, 200 MG (DANCO LABS) [Suspect]
     Indication: ABORTION INDUCED
     Dosage: 200 MG, ORAL
     Route: 048
     Dates: start: 20051013
  2. MISOPROSTOL [Suspect]
     Dosage: 800 MCG, VAGINAL
     Route: 067
     Dates: start: 20051014
  3. VICODEN [Concomitant]
  4. PAXIL [Concomitant]
  5. CATAPRES [Concomitant]
  6. DESYREL [Concomitant]
  7. FIORICET [Concomitant]

REACTIONS (2)
  - MENORRHAGIA [None]
  - PAIN [None]
